FAERS Safety Report 24265504 (Version 2)
Quarter: 2024Q3

REPORT INFORMATION
  Report Type: Spontaneous
  Country: US (occurrence: US)
  Receive Date: 20240829
  Receipt Date: 20240911
  Transmission Date: 20241017
  Serious: Yes (Other)
  Sender: BLUEPRINT MEDICINES
  Company Number: US-Blueprint Medicines Corporation-SP-US-2024-001684

PATIENT
  Age: 47 Year
  Sex: Male
  Weight: 161.8 kg

DRUGS (6)
  1. AYVAKIT [Suspect]
     Active Substance: AVAPRITINIB
     Indication: Indolent systemic mastocytosis
     Route: 065
     Dates: start: 20230827, end: 20231213
  2. AYVAKIT [Suspect]
     Active Substance: AVAPRITINIB
     Route: 065
     Dates: start: 20240604, end: 202407
  3. FEXOFENADINE [Concomitant]
     Active Substance: FEXOFENADINE HYDROCHLORIDE
     Indication: Indolent systemic mastocytosis
     Route: 065
  4. FAMOTIDINE [Concomitant]
     Active Substance: FAMOTIDINE
     Indication: Indolent systemic mastocytosis
     Route: 065
  5. GASTROCROM [Concomitant]
     Active Substance: CROMOLYN SODIUM
     Indication: Indolent systemic mastocytosis
     Route: 065
  6. KETOTIFEN [Concomitant]
     Active Substance: KETOTIFEN
     Indication: Indolent systemic mastocytosis
     Route: 065

REACTIONS (1)
  - Scrotal swelling [Recovered/Resolved]

NARRATIVE: CASE EVENT DATE: 20231226
